FAERS Safety Report 25538446 (Version 1)
Quarter: 2025Q3

REPORT INFORMATION
  Report Type: Spontaneous
  Country: EU (occurrence: EU)
  Receive Date: 20250710
  Receipt Date: 20250710
  Transmission Date: 20251021
  Serious: Yes (Other)
  Sender: MACLEODS
  Company Number: EU-MACLEODS PHARMA-MAC2025053949

PATIENT

DRUGS (23)
  1. LINEZOLID [Suspect]
     Active Substance: LINEZOLID
     Indication: Encephalitis
     Dosage: 2 WEEKS
     Route: 042
  2. LINEZOLID [Suspect]
     Active Substance: LINEZOLID
     Indication: CNS ventriculitis
  3. LINEZOLID [Suspect]
     Active Substance: LINEZOLID
     Indication: Encephalitis
  4. LINEZOLID [Suspect]
     Active Substance: LINEZOLID
     Indication: CNS ventriculitis
  5. LINEZOLID [Suspect]
     Active Substance: LINEZOLID
     Indication: Encephalitis
  6. LINEZOLID [Suspect]
     Active Substance: LINEZOLID
     Indication: CNS ventriculitis
  7. DEXAMETHASONE [Concomitant]
     Active Substance: DEXAMETHASONE
     Route: 065
  8. DEXAMETHASONE [Concomitant]
     Active Substance: DEXAMETHASONE
  9. DEXAMETHASONE [Concomitant]
     Active Substance: DEXAMETHASONE
  10. DEXAMETHASONE [Concomitant]
     Active Substance: DEXAMETHASONE
     Indication: Central nervous system infection
  11. ETHAMBUTOL [Concomitant]
     Active Substance: ETHAMBUTOL HYDROCHLORIDE
     Route: 042
  12. ETHAMBUTOL [Concomitant]
     Active Substance: ETHAMBUTOL HYDROCHLORIDE
  13. ETHAMBUTOL [Concomitant]
     Active Substance: ETHAMBUTOL HYDROCHLORIDE
  14. ETHAMBUTOL [Concomitant]
     Active Substance: ETHAMBUTOL HYDROCHLORIDE
     Indication: Central nervous system infection
  15. ISONIAZID [Concomitant]
     Active Substance: ISONIAZID
     Route: 042
  16. ISONIAZID [Concomitant]
     Active Substance: ISONIAZID
  17. ISONIAZID [Concomitant]
     Active Substance: ISONIAZID
  18. ISONIAZID [Concomitant]
     Active Substance: ISONIAZID
     Indication: Central nervous system infection
  19. RIFAMPIN [Concomitant]
     Active Substance: RIFAMPIN
     Route: 042
  20. RIFAMPIN [Concomitant]
     Active Substance: RIFAMPIN
  21. RIFAMPIN [Concomitant]
     Active Substance: RIFAMPIN
  22. RIFAMPIN [Concomitant]
     Active Substance: RIFAMPIN
     Indication: Central nervous system infection
  23. TOLVAPTAN [Concomitant]
     Active Substance: TOLVAPTAN
     Route: 048

REACTIONS (1)
  - Thrombocytopenia [Unknown]
